FAERS Safety Report 23577131 (Version 2)
Quarter: 2024Q1

REPORT INFORMATION
  Report Type: Spontaneous
  Country: DE (occurrence: DE)
  Receive Date: 20240228
  Receipt Date: 20240313
  Transmission Date: 20240410
  Serious: No
  Sender: FDA-Public Use
  Company Number: DE-VER-202400003

PATIENT
  Sex: Male

DRUGS (4)
  1. TRIPTORELIN PAMOATE [Suspect]
     Active Substance: TRIPTORELIN PAMOATE
     Indication: Prostate cancer
     Dosage: 11.25 MG, EVERY 3 MONTHS (11.25 MG,3 MONTH) / ABDOMEN VIA SKIN FOLD
     Route: 065
     Dates: start: 202103
  2. VITAMIN D3 [Concomitant]
     Active Substance: CHOLECALCIFEROL
     Indication: Product used for unknown indication
     Dosage: LOW DOSE OF 2000
     Route: 065
  3. MAGNESIUM [Concomitant]
     Active Substance: MAGNESIUM
     Indication: Product used for unknown indication
     Dosage: OCCASIONALLY
     Route: 065
  4. METFORMIN [Concomitant]
     Active Substance: METFORMIN HYDROCHLORIDE
     Indication: Product used for unknown indication
     Route: 065

REACTIONS (14)
  - Back pain [Unknown]
  - Onychoclasis [Unknown]
  - Muscle spasms [Unknown]
  - Muscle spasms [Unknown]
  - Injection site hypertrophy [Unknown]
  - Hot flush [Unknown]
  - Hypoaesthesia [Unknown]
  - Wrong technique in product usage process [Unknown]
  - Pelvic pain [Unknown]
  - Blood glucose increased [Unknown]
  - Therapeutic response shortened [Unknown]
  - Hyperhidrosis [Unknown]
  - Blood testosterone abnormal [Unknown]
  - Blood testosterone increased [Unknown]
